FAERS Safety Report 6255829-4 (Version None)
Quarter: 2009Q3

REPORT INFORMATION
  Report Type: 
  Country: None (occurrence: None)
  Receive Date: 20090703
  Receipt Date: 20090623
  Transmission Date: 20100115
  Serious: No
  Sender: FDA-Public Use
  Company Number: US-PFIZER INC-2009200407

PATIENT
  Sex: Male
  Weight: 120.18 kg

DRUGS (1)
  1. SUTENT [Suspect]
     Dosage: 50 MG, 1X/DAY, 28 DAYS ON, 14 DAYS OFF
     Dates: start: 20080901

REACTIONS (1)
  - BLOOD PRESSURE INCREASED [None]
